FAERS Safety Report 14174717 (Version 1)
Quarter: 2017Q4

REPORT INFORMATION
  Report Type: Spontaneous
  Country: US (occurrence: US)
  Receive Date: 20171109
  Receipt Date: 20171109
  Transmission Date: 20180321
  Serious: Yes (Hospitalization, Other)
  Sender: FDA-Public Use
  Company Number: US-TAKEDA-2017TUS023110

PATIENT
  Age: 0 Day

DRUGS (1)
  1. ENTYVIO [Suspect]
     Active Substance: VEDOLIZUMAB
     Indication: CROHN^S DISEASE
     Dosage: UNK
     Route: 064

REACTIONS (2)
  - Hypoglycaemia [Unknown]
  - Small for dates baby [Unknown]

NARRATIVE: CASE EVENT DATE: 20171025
